FAERS Safety Report 20973258 (Version 2)
Quarter: 2023Q2

REPORT INFORMATION
  Report Type: Spontaneous
  Country: US (occurrence: US)
  Receive Date: 20220617
  Receipt Date: 20230614
  Transmission Date: 20230722
  Serious: No
  Sender: FDA-Public Use
  Company Number: US-ENDO PHARMACEUTICALS INC-2022-002910

PATIENT
  Age: 8 Year
  Sex: Female
  Weight: 33 kg

DRUGS (4)
  1. SUPPRELIN LA [Suspect]
     Active Substance: HISTRELIN ACETATE
     Indication: Precocious puberty
     Dosage: UNK UNKNOWN, UNKNOWN (SECOND IMPLANT; INTO LEFT UPPER INNER UPPER ARM MEDIAL)
     Route: 058
     Dates: start: 20220404
  2. SUPPRELIN LA [Suspect]
     Active Substance: HISTRELIN ACETATE
     Indication: Precocious puberty
     Dosage: UNK UNKNOWN, UNKNOWN (SECOND IMPLANT; INTO LEFT UPPER INNER UPPER ARM MEDIAL)
     Route: 058
     Dates: start: 20220404
  3. SUPPRELIN LA [Suspect]
     Active Substance: HISTRELIN ACETATE
     Dosage: UNK UNKNOWN, UNKNOWN (FIRST IMPLANT; INTO LEFT UPPER INNER UPPER ARM)
     Route: 058
     Dates: start: 20210405
  4. SUPPRELIN LA [Suspect]
     Active Substance: HISTRELIN ACETATE
     Dosage: UNK UNKNOWN, UNKNOWN (FIRST IMPLANT; INTO LEFT UPPER INNER UPPER ARM)
     Route: 058
     Dates: start: 20210405

REACTIONS (6)
  - Rash maculo-papular [Recovered/Resolved]
  - Rash pruritic [Unknown]
  - Implant site pain [Unknown]
  - Pain [Unknown]
  - Pruritus [Unknown]
  - Device issue [None]

NARRATIVE: CASE EVENT DATE: 20220401
